FAERS Safety Report 19751507 (Version 1)
Quarter: 2021Q3

REPORT INFORMATION
  Report Type: Spontaneous
  Country: NL (occurrence: NL)
  Receive Date: 20210827
  Receipt Date: 20210827
  Transmission Date: 20211014
  Serious: Yes (Other)
  Sender: FDA-Public Use
  Company Number: NL-SHILPA MEDICARE LIMITED-SML-NL-2021-01018

PATIENT

DRUGS (2)
  1. IMATINIB, UNKNOWN [Suspect]
     Active Substance: IMATINIB
     Indication: COVID-19
     Dosage: LOADING DOSE OF 800 MG ON DAY?0
     Route: 048
  2. IMATINIB, UNKNOWN [Suspect]
     Active Substance: IMATINIB
     Dosage: 400 MG DAILY ON DAYS 1 TO 9
     Route: 048

REACTIONS (2)
  - Haemorrhagic stroke [Unknown]
  - Product use in unapproved indication [Unknown]
